FAERS Safety Report 9132522 (Version 2)
Quarter: 2014Q3

REPORT INFORMATION
  Report Type: Spontaneous
  Country: US (occurrence: US)
  Receive Date: 20130208
  Receipt Date: 20140823
  Transmission Date: 20150326
  Serious: Yes (Hospitalization, Other)
  Sender: FDA-Public Use
  Company Number: US-009507513-2007-155044-NL

PATIENT
  Sex: Female
  Weight: 70.31 kg

DRUGS (7)
  1. DIPHENHYDRAMINE HYDROCHLORIDE (+) HYDROCODONE BITARTRATE (+) PHENYLEPH [Concomitant]
     Indication: PRODUCT USED FOR UNKNOWN INDICATION
  2. FLUCONAZOLE. [Concomitant]
     Active Substance: FLUCONAZOLE
     Indication: PRODUCT USED FOR UNKNOWN INDICATION
     Dosage: 150 MG, UNK
  3. METHYLPREDNISOLONE [Concomitant]
     Active Substance: METHYLPREDNISOLONE
     Indication: PRODUCT USED FOR UNKNOWN INDICATION
     Dosage: 4 MG, UNK
  4. NUVARING [Suspect]
     Active Substance: ETHINYL ESTRADIOL\ETONOGESTREL
     Indication: PREMENSTRUAL SYNDROME
     Dosage: DOSE TEXT: 3 WEEKS IN/ 1 WEEK OUT, CONTINUING: YES
     Route: 067
     Dates: start: 20070216, end: 20071026
  5. NUVARING [Suspect]
     Active Substance: ETHINYL ESTRADIOL\ETONOGESTREL
     Indication: CONTRACEPTION
  6. NUVARING [Suspect]
     Active Substance: ETHINYL ESTRADIOL\ETONOGESTREL
     Indication: MENSTRUAL CYCLE MANAGEMENT
  7. MINERALS (UNSPECIFIED) (+) VITAMINS (UNSPECIFIED) [Concomitant]
     Indication: PRODUCT USED FOR UNKNOWN INDICATION
     Dates: start: 200705

REACTIONS (17)
  - Polycythaemia vera [Unknown]
  - Bronchitis [Unknown]
  - Costochondritis [Unknown]
  - Migraine [Unknown]
  - Pulmonary embolism [Unknown]
  - Hypoalbuminaemia [Unknown]
  - Rhinitis [Unknown]
  - Otitis media [Unknown]
  - Menorrhagia [Unknown]
  - Wisdom teeth removal [Unknown]
  - Vaginal haemorrhage [Unknown]
  - Vaginal discharge [Not Recovered/Not Resolved]
  - Coital bleeding [Not Recovered/Not Resolved]
  - Gastroenteritis [Unknown]
  - Off label use [Unknown]
  - Headache [Unknown]
  - Fatigue [Unknown]

NARRATIVE: CASE EVENT DATE: 2007
